FAERS Safety Report 20200531 (Version 1)
Quarter: 2021Q4

REPORT INFORMATION
  Report Type: Report from Study
  Country: CA (occurrence: CA)
  Receive Date: 20211217
  Receipt Date: 20211217
  Transmission Date: 20220303
  Serious: Yes (Other)
  Sender: FDA-Public Use
  Company Number: CA-TEVA-2021-CA-1988611

PATIENT
  Age: 39 Year
  Sex: Female

DRUGS (6)
  1. CINQAIR [Suspect]
     Active Substance: RESLIZUMAB
     Indication: Asthma
     Dosage: LAST INFUSION DATE: 03-DEC-2021
     Route: 042
     Dates: start: 20190513
  2. PREDNISONE [Suspect]
     Active Substance: PREDNISONE
     Indication: Cystic fibrosis
     Route: 065
     Dates: start: 2019
  3. PREDNISONE [Suspect]
     Active Substance: PREDNISONE
     Indication: Asthma
     Dosage: 20 MILLIGRAM DAILY;
     Route: 065
     Dates: start: 2019
  4. PREDNISONE [Suspect]
     Active Substance: PREDNISONE
     Indication: Hypersensitivity
  5. NUCALA [Concomitant]
     Active Substance: MEPOLIZUMAB
     Route: 065
  6. SYMBICORT [Concomitant]
     Active Substance: BUDESONIDE\FORMOTEROL FUMARATE DIHYDRATE
     Route: 065

REACTIONS (1)
  - Cystic fibrosis [Unknown]

NARRATIVE: CASE EVENT DATE: 20210101
